FAERS Safety Report 15275423 (Version 1)
Quarter: 2018Q3

REPORT INFORMATION
  Report Type: Spontaneous
  Country: MX (occurrence: MX)
  Receive Date: 20180814
  Receipt Date: 20180814
  Transmission Date: 20181010
  Serious: Yes (Life-Threatening, Hospitalization, Other)
  Sender: FDA-Public Use
  Company Number: MX-TEVA-2018-MX-896173

PATIENT
  Age: 20 Year
  Sex: Female
  Weight: 113 kg

DRUGS (1)
  1. SEASONIQUE [Suspect]
     Active Substance: ETHINYL ESTRADIOL\LEVONORGESTREL
     Indication: CONTRACEPTION
     Route: 048
     Dates: start: 201801

REACTIONS (11)
  - Pulmonary embolism [Recovering/Resolving]
  - Syncope [Recovered/Resolved]
  - Feeling abnormal [Recovered/Resolved]
  - Pain [Recovered/Resolved]
  - Peripheral swelling [Recovering/Resolving]
  - Deep vein thrombosis [Recovering/Resolving]
  - Gait inability [Recovering/Resolving]
  - Vaginal haemorrhage [Recovered/Resolved]
  - Pain in extremity [Recovering/Resolving]
  - Contusion [Recovering/Resolving]
  - Uterine infection [Unknown]

NARRATIVE: CASE EVENT DATE: 2018
